FAERS Safety Report 11130701 (Version 1)
Quarter: 2015Q2

REPORT INFORMATION
  Report Type: Report from Study
  Country: ZA (occurrence: ZA)
  Receive Date: 20150522
  Receipt Date: 20150522
  Transmission Date: 20150821
  Serious: Yes (Death, Hospitalization)
  Sender: FDA-Public Use
  Company Number: ZA-ROCHE-1581723

PATIENT
  Age: 48 Year
  Sex: Female

DRUGS (2)
  1. MIRCERA [Suspect]
     Active Substance: METHOXY POLYETHYLENE GLYCOL-EPOETIN BETA
     Indication: NEPHROGENIC ANAEMIA
     Route: 058
     Dates: start: 20150101
  2. VENOFER [Concomitant]
     Active Substance: IRON SUCROSE
     Route: 065

REACTIONS (3)
  - Death [Fatal]
  - Brain neoplasm [Unknown]
  - Localised infection [Unknown]

NARRATIVE: CASE EVENT DATE: 20150320
